FAERS Safety Report 13824170 (Version 1)
Quarter: 2017Q3

REPORT INFORMATION
  Report Type: Spontaneous
  Country: IT (occurrence: IT)
  Receive Date: 20170802
  Receipt Date: 20170802
  Transmission Date: 20171127
  Serious: Yes (Life-Threatening, Hospitalization, Other)
  Sender: FDA-Public Use
  Company Number: IT-FLAMINGO-000709

PATIENT
  Age: 62 Year
  Sex: Male

DRUGS (3)
  1. CIPROFLOXACIN. [Suspect]
     Active Substance: CIPROFLOXACIN
     Indication: ANTIBIOTIC PROPHYLAXIS
     Dates: start: 201604, end: 201604
  2. CEFTAZIDIME/CEFTAZIDIME PENTAHYDRATE [Suspect]
     Active Substance: CEFTAZIDIME
     Indication: PROPHYLAXIS URINARY TRACT INFECTION
     Dates: start: 201604, end: 201604
  3. METRONIDAZOLE. [Suspect]
     Active Substance: METRONIDAZOLE
     Indication: CLOSTRIDIUM DIFFICILE COLITIS
     Dosage: DOSE: 500 MG EVERY 6 H FOR 7 DAYS
     Dates: start: 201605, end: 201605

REACTIONS (5)
  - Septic shock [Recovered/Resolved]
  - Coma [Recovered/Resolved]
  - Meningitis [Recovered/Resolved]
  - Pseudomembranous colitis [Recovered/Resolved]
  - Listeriosis [Recovered/Resolved]

NARRATIVE: CASE EVENT DATE: 2016
